FAERS Safety Report 5109119-3 (Version None)
Quarter: 2006Q3

REPORT INFORMATION
  Report Type: 
  Country: None (occurrence: None)
  Receive Date: 20060920
  Receipt Date: 20060125
  Transmission Date: 20061208
  Serious: Yes (Other)
  Sender: FDA-Public Use
  Company Number: US-ROCHE-433876

PATIENT
  Age: 20 Year
  Sex: Male
  Weight: 97.5 kg

DRUGS (5)
  1. ACCUTANE [Suspect]
     Indication: ACNE
     Route: 048
     Dates: start: 20010803, end: 20011018
  2. ACCUTANE [Suspect]
     Dosage: FREQUENCY WAS REPORTED AS EVERY OTHER DAY.
     Route: 048
     Dates: start: 20011025, end: 20011102
  3. MINOCYCLIN [Concomitant]
     Indication: ACNE
  4. TOPROL-XL [Concomitant]
  5. ERY-TAB [Concomitant]
     Indication: ACNE

REACTIONS (6)
  - FAT TISSUE INCREASED [None]
  - HEPATIC STEATOSIS [None]
  - HEPATITIS [None]
  - HEPATOCELLULAR DAMAGE [None]
  - INJURY [None]
  - LIVER FUNCTION TEST ABNORMAL [None]
